FAERS Safety Report 6155561-1 (Version None)
Quarter: 2009Q2

REPORT INFORMATION
  Report Type: 
  Country: None (occurrence: None)
  Receive Date: 20090413
  Receipt Date: 20090402
  Transmission Date: 20091009
  Serious: Yes (Hospitalization)
  Sender: FDA-Public Use
  Company Number: 2009AL001707

PATIENT
  Age: 85 Year
  Sex: Female

DRUGS (4)
  1. DIGOXIN [Suspect]
     Dosage: 0.25MG, DAILY, PO
     Route: 048
  2. AMARYL [Concomitant]
  3. LISINOPRIL [Concomitant]
  4. NORVASC [Concomitant]

REACTIONS (7)
  - ACUTE MYOCARDIAL INFARCTION [None]
  - ATRIAL FIBRILLATION [None]
  - ECONOMIC PROBLEM [None]
  - EMOTIONAL DISORDER [None]
  - HYPOTENSION [None]
  - PAIN [None]
  - PERICARDIAL RUB [None]
